FAERS Safety Report 4303782-2 (Version None)
Quarter: 2004Q1

REPORT INFORMATION
  Report Type: 
  Country: None (occurrence: None)
  Receive Date: 20040225
  Receipt Date: 20031203
  Transmission Date: 20041129
  Serious: Yes (Other)
  Sender: FDA-Public Use
  Company Number: PHBS2003JP13671

PATIENT
  Age: 66 Year
  Sex: Male
  Weight: 80 kg

DRUGS (6)
  1. LAMISIL [Suspect]
     Indication: NAIL TINEA
     Dosage: 125 MG/DAY
     Route: 048
     Dates: start: 20031127, end: 20031203
  2. LOXONIN [Concomitant]
     Indication: BACK PAIN
     Dosage: 180 MG/D
     Route: 048
  3. MYONAL [Concomitant]
     Indication: BACK PAIN
     Dosage: 150 MG/D
     Route: 048
  4. LIPITOR [Concomitant]
     Indication: HYPERLIPIDAEMIA
     Route: 048
  5. CYANOCOBALAMIN [Concomitant]
     Route: 048
  6. SELBEX [Concomitant]
     Dosage: 150 MG/D
     Route: 048

REACTIONS (2)
  - BLOOD PRESSURE INCREASED [None]
  - HEADACHE [None]
